FAERS Safety Report 8605382-2 (Version None)
Quarter: 2012Q3

REPORT INFORMATION
  Report Type: 
  Country: None (occurrence: None)
  Receive Date: 20120820
  Receipt Date: 20080526
  Transmission Date: 20120928
  Serious: Yes (Other)
  Sender: FDA-Public Use
  Company Number: CO-PFIZER INC-2012200191

PATIENT
  Age: 78 Year
  Sex: Female

DRUGS (6)
  1. OLMESARTAN MEDOXOMIL AND HYDROCHLOROTHIZIDE [Suspect]
     Indication: HYPERTENSION
     Dosage: [OLMESARTAN MEDOXOMIL 20 MG]/ [HYDROCHLOROTHIAZIDE 12.5MG] ONCE DAILY
  2. NORVASC [Suspect]
     Indication: HYPERTENSION
     Dosage: 5 MG,  ONCE DAILY
  3. ACETYLSALICYLIC ACID [Concomitant]
     Dosage: 100 MG, ONCE DAILY
  4. LIPITOR [Suspect]
     Indication: DYSLIPIDAEMIA
     Dosage: 10 MG,  ONCE DAILY
  5. OMEPRAZOLE [Concomitant]
     Dosage: 20 MG, ONCE DAILY
  6. METFORMIN [Concomitant]
     Dosage: 850 MG, ONCE DAILY

REACTIONS (1)
  - CARDIAC FAILURE [None]
